FAERS Safety Report 4510452-4 (Version None)
Quarter: 2004Q4

REPORT INFORMATION
  Report Type: 
  Country: None (occurrence: None)
  Receive Date: 20041124
  Receipt Date: 20040923
  Transmission Date: 20050328
  Serious: Yes (Other)
  Sender: FDA-Public Use
  Company Number: GB-GLAXOSMITHKLINE-B0346161A

PATIENT
  Sex: Female

DRUGS (1)
  1. REQUIP [Suspect]
     Indication: PARKINSON'S DISEASE
     Dosage: 15MG PER DAY
     Route: 048
     Dates: start: 20020101, end: 20040901

REACTIONS (4)
  - PULMONARY FIBROSIS [None]
  - RESPIRATORY DISORDER [None]
  - TOTAL LUNG CAPACITY DECREASED [None]
  - TRANSFER FACTOR REDUCED [None]
